FAERS Safety Report 14616234 (Version 1)
Quarter: 2018Q1

REPORT INFORMATION
  Report Type: Other
  Country: FR (occurrence: FR)
  Receive Date: 20180309
  Receipt Date: 20180309
  Transmission Date: 20180509
  Serious: Yes (Hospitalization, Other)
  Sender: FDA-Public Use
  Company Number: FR-MACLEODS PHARMACEUTICALS US LTD-MAC2018010915

PATIENT

DRUGS (13)
  1. LOVENOX [Suspect]
     Active Substance: ENOXAPARIN SODIUM
     Indication: EMBOLISM VENOUS
     Dosage: 4000 IU, UNK
     Route: 058
     Dates: start: 20180118, end: 20180129
  2. MOVICOL [Suspect]
     Active Substance: POLYETHYLENE GLYCOL 3350\POTASSIUM CHLORIDE\SODIUM BICARBONATE\SODIUM CHLORIDE
     Indication: CONSTIPATION
     Dosage: 10 G, QD (1-0-0 )
     Route: 048
     Dates: end: 20180214
  3. TAVANIC [Suspect]
     Active Substance: LEVOFLOXACIN
     Indication: INTERVERTEBRAL DISCITIS
     Dosage: 1000 MG, QD (1-0-1 ) (500 MG FILM-COATED TABLETS)
     Route: 048
     Dates: start: 20180129, end: 20180205
  4. ERYTHROMYCIN. [Suspect]
     Active Substance: ERYTHROMYCIN
     Indication: INTERVERTEBRAL DISCITIS
     Dosage: 250 MG, UNK
     Route: 042
     Dates: start: 20180202, end: 20180202
  5. TAZOCILLINE [Suspect]
     Active Substance: PIPERACILLIN SODIUM\TAZOBACTAM SODIUM
     Indication: INTERVERTEBRAL DISCITIS
     Dosage: 3 DF, QD (4 G/500 MG, POUDRE POUR SOLUTION POUR PERFUSION)
     Route: 042
     Dates: start: 20180121, end: 20180128
  6. PANTOPRAZOLE [Suspect]
     Active Substance: PANTOPRAZOLE
     Indication: GASTROINTESTINAL HAEMORRHAGE
     Dosage: 8 MG, 1 HOUR
     Route: 042
     Dates: start: 20180202, end: 20180205
  7. CALCIPARINE [Suspect]
     Active Substance: HEPARIN CALCIUM
     Indication: EMBOLISM VENOUS
     Dosage: 20000 IU, UNK
     Route: 058
     Dates: start: 20180214
  8. DUOTRAV [Suspect]
     Active Substance: TIMOLOL MALEATE\TRAVOPROST
     Indication: GLAUCOMA
     Dosage: 2 [DRP], QD (1 DROP MORNING AND EVENING (2 EYES)) (40 MICROGRAMMES/ML + 5 MG/ML, EYE DROP SOLUTIO)
     Route: 047
     Dates: start: 20180122, end: 20180214
  9. HEPARIN SODIUM. [Suspect]
     Active Substance: HEPARIN SODIUM
     Indication: EMBOLISM VENOUS
     Dosage: 600000 IU, QD, (SEVERAL DOSES FROM 60000 IU / DAY TO 25000 IU / DAY)
     Route: 058
     Dates: start: 20180129, end: 20180214
  10. LASILIX [Suspect]
     Active Substance: FUROSEMIDE
     Indication: INTERVERTEBRAL DISCITIS
     Dosage: 80 MG, UNK ( 250 MG / 25 ML SOLUTION FOR INJECTION IN AMPOULE)
     Route: 042
     Dates: start: 20180203, end: 20180205
  11. VANCOMYCIN [Suspect]
     Active Substance: VANCOMYCIN
     Indication: INTERVERTEBRAL DISCITIS
     Dosage: 3500 MG, QD (500 MG POWDER FOR SOLUTION FOR INFUSION)
     Route: 048
     Dates: start: 20180121, end: 20180124
  12. OFLOCET [Suspect]
     Active Substance: OFLOXACIN
     Indication: URINARY TRACT INFECTION
     Dosage: UNK
     Route: 048
     Dates: start: 20180109, end: 20180116
  13. RIFADINE [Suspect]
     Active Substance: RIFAMPIN
     Indication: INTERVERTEBRAL DISCITIS
     Dosage: 1200 MG, QD, (2-0-2 ) (300 MG HARD CAPSULE)
     Route: 048
     Dates: start: 20180129, end: 20180207

REACTIONS (1)
  - Drug reaction with eosinophilia and systemic symptoms [Not Recovered/Not Resolved]

NARRATIVE: CASE EVENT DATE: 20180126
